FAERS Safety Report 20895048 (Version 1)
Quarter: 2022Q2

REPORT INFORMATION
  Report Type: Spontaneous
  Country: JP (occurrence: JP)
  Receive Date: 20220531
  Receipt Date: 20220531
  Transmission Date: 20220720
  Serious: Yes (Other)
  Sender: FDA-Public Use
  Company Number: JP-GSKNCCC-Case-01500492_AE-58482

PATIENT

DRUGS (3)
  1. LAMICTAL [Suspect]
     Active Substance: LAMOTRIGINE
     Dosage: 50 MG PER DAY
  2. LAMICTAL [Suspect]
     Active Substance: LAMOTRIGINE
     Dosage: 10 MG PER DAY
     Dates: end: 20220413
  3. LAMICTAL [Suspect]
     Active Substance: LAMOTRIGINE
     Dosage: 20 MG PER DAY
     Dates: start: 20220414

REACTIONS (2)
  - Cerebral infarction [Unknown]
  - Rash [Not Recovered/Not Resolved]

NARRATIVE: CASE EVENT DATE: 20220526
